FAERS Safety Report 15480984 (Version 1)
Quarter: 2018Q4

REPORT INFORMATION
  Report Type: Report from Study
  Country: TR (occurrence: TR)
  Receive Date: 20181010
  Receipt Date: 20181010
  Transmission Date: 20190205
  Serious: Yes (Hospitalization)
  Sender: FDA-Public Use
  Company Number: TR-TEVA-2018-TR-961398

PATIENT
  Age: 64 Year
  Sex: Male

DRUGS (5)
  1. METFORMIN [Concomitant]
     Active Substance: METFORMIN HYDROCHLORIDE
     Route: 065
  2. ASPIRIN. [Suspect]
     Active Substance: ASPIRIN
     Indication: ANALGESIC INTERVENTION SUPPORTIVE THERAPY
     Route: 065
  3. RAMIPRIL. [Concomitant]
     Active Substance: RAMIPRIL
     Indication: RENIN-ANGIOTENSIN SYSTEM INHIBITION
     Route: 065
  4. PREDNISONE. [Concomitant]
     Active Substance: PREDNISONE
     Indication: STEROID THERAPY
     Route: 065
  5. METHOTREXATE. [Suspect]
     Active Substance: METHOTREXATE
     Indication: AUTOINFLAMMATORY DISEASE
     Route: 065

REACTIONS (4)
  - Toxicity to various agents [Unknown]
  - Hepatotoxicity [Unknown]
  - Pancytopenia [Unknown]
  - Mucosal inflammation [Unknown]
